FAERS Safety Report 4630693-5 (Version None)
Quarter: 2005Q2

REPORT INFORMATION
  Report Type: 
  Country: None (occurrence: None)
  Receive Date: 20050408
  Receipt Date: 20050106
  Transmission Date: 20051028
  Serious: Yes (Hospitalization, Other)
  Sender: FDA-Public Use
  Company Number: US-MERCK-0501USA00630

PATIENT
  Age: 57 Year
  Sex: Male
  Weight: 123 kg

DRUGS (3)
  1. VIOXX [Suspect]
     Indication: ARTHRITIS
     Route: 048
     Dates: start: 20000619, end: 20010614
  2. NITROGLYCERIN [Concomitant]
     Indication: CHEST PAIN
     Route: 065
     Dates: start: 20000821
  3. COUMADIN [Concomitant]
     Indication: DEEP VEIN THROMBOSIS
     Route: 065
     Dates: start: 20001201

REACTIONS (4)
  - ANAL FISSURE [None]
  - CHEST PAIN [None]
  - DEEP VEIN THROMBOSIS [None]
  - PULMONARY EMBOLISM [None]
